FAERS Safety Report 12009636 (Version 1)
Quarter: 2016Q1

REPORT INFORMATION
  Report Type: Spontaneous
  Country: US (occurrence: None)
  Receive Date: 20160204
  Receipt Date: 20160204
  Transmission Date: 20160526
  Serious: Yes (Other)
  Sender: FDA-Public Use
  Company Number: None

PATIENT
  Age: 58 Year
  Sex: Female
  Weight: 113.4 kg

DRUGS (3)
  1. BUMETANIDE 1 MG EON [Suspect]
     Active Substance: BUMETANIDE
     Dosage: 1.5 TABLETS QD ORAL
     Route: 048
     Dates: start: 20150105, end: 20160201
  2. EPLERENONE. [Concomitant]
     Active Substance: EPLERENONE
  3. ASPIRIN. [Concomitant]
     Active Substance: ASPIRIN

REACTIONS (2)
  - Drug effect decreased [None]
  - Product substitution issue [None]

NARRATIVE: CASE EVENT DATE: 20160105
